FAERS Safety Report 20732719 (Version 2)
Quarter: 2022Q2

REPORT INFORMATION
  Report Type: Spontaneous
  Country: US (occurrence: US)
  Receive Date: 20220420
  Receipt Date: 20220512
  Transmission Date: 20220721
  Serious: Yes (Life-Threatening, Hospitalization, Other)
  Sender: FDA-Public Use
  Company Number: US-GILEAD-2022-0578319

PATIENT
  Age: 44 Year
  Sex: Male
  Weight: 85 kg

DRUGS (5)
  1. VEKLURY [Suspect]
     Active Substance: REMDESIVIR
     Indication: COVID-19
     Dosage: 100 MG, QD
     Route: 042
     Dates: start: 20220308, end: 20220317
  2. VEKLURY [Suspect]
     Active Substance: REMDESIVIR
     Dosage: 100 MG, QD
     Route: 042
     Dates: start: 20220405, end: 20220414
  3. VINCRISTINE [Concomitant]
     Active Substance: VINCRISTINE
  4. DEXAMETHASONE [Concomitant]
     Active Substance: DEXAMETHASONE
     Dosage: UNK, 3 WEEK TAPER
     Dates: start: 202203
  5. OXYGEN [Concomitant]
     Active Substance: OXYGEN

REACTIONS (2)
  - Lower respiratory tract infection viral [Unknown]
  - Viraemia [Unknown]
